FAERS Safety Report 5035250-7 (Version None)
Quarter: 2006Q2

REPORT INFORMATION
  Report Type: 
  Country: None (occurrence: None)
  Receive Date: 20060522
  Receipt Date: 20060307
  Transmission Date: 20061013
  Serious: Yes (Hospitalization)
  Sender: FDA-Public Use
  Company Number: US-JNJFOC-20060302015

PATIENT
  Age: 29 Year
  Sex: Female
  Weight: 77.1115 kg

DRUGS (3)
  1. RISPERDAL CONSTA [Suspect]
     Indication: BIPOLAR DISORDER
     Dosage: 50 MG, 1 IN  2 WEEK, INTRAMUSCULAR
     Route: 030
     Dates: start: 20041101
  2. SEROQUEL [Concomitant]
  3. TRILEPTAL [Concomitant]

REACTIONS (1)
  - BIPOLAR DISORDER [None]
